FAERS Safety Report 22285054 (Version 2)
Quarter: 2023Q2

REPORT INFORMATION
  Report Type: Spontaneous
  Country: US (occurrence: US)
  Receive Date: 20230504
  Receipt Date: 20230612
  Transmission Date: 20230721
  Serious: Yes (Hospitalization, Other)
  Sender: FDA-Public Use
  Company Number: US-MYLANLABS-2023M1040935

PATIENT
  Sex: Male

DRUGS (6)
  1. SEMGLEE (INSULIN GLARGINE-YFGN) [Suspect]
     Active Substance: INSULIN GLARGINE-YFGN
     Indication: Diabetes mellitus
     Dosage: 70 INTERNATIONAL UNIT, QD
     Route: 058
     Dates: start: 20230125
  2. SEMGLEE (INSULIN GLARGINE-YFGN) [Suspect]
     Active Substance: INSULIN GLARGINE-YFGN
     Dosage: 60 INTERNATIONAL UNIT, QD
     Route: 058
     Dates: start: 20230120, end: 20230428
  3. ZOFRAN [Concomitant]
     Active Substance: ONDANSETRON HYDROCHLORIDE
     Dosage: UNK
     Route: 065
  4. PRAVASTATIN [Concomitant]
     Active Substance: PRAVASTATIN
     Dosage: UNK (80)
     Route: 065
  5. Humalog hd kwikpen [Concomitant]
     Dosage: UNK (100 U/ML)
     Route: 065
  6. LEVOTHYROXINE [Concomitant]
     Active Substance: LEVOTHYROXINE
     Dosage: UNK (25)
     Route: 065

REACTIONS (4)
  - Blood glucose increased [Recovered/Resolved]
  - Device breakage [Unknown]
  - Device defective [Unknown]
  - Drug ineffective [Unknown]
